FAERS Safety Report 8621938-5 (Version None)
Quarter: 2012Q3

REPORT INFORMATION
  Report Type: 
  Country: None (occurrence: None)
  Receive Date: 20120822
  Receipt Date: 20120822
  Transmission Date: 20120928
  Serious: Yes (Life-Threatening)
  Sender: FDA-Public Use
  Company Number: None

PATIENT
  Sex: Male
  Weight: 3.8 kg

DRUGS (8)
  1. GENTAMICIN [Suspect]
     Indication: PNEUMONIA
     Dosage: 15MG Q24 HOURS IV 0500 DAILY
     Route: 042
     Dates: start: 20120802, end: 20120805
  2. GENTAMICIN [Suspect]
     Indication: SEPSIS
     Dosage: 15MG Q24 HOURS IV 0500 DAILY
     Route: 042
     Dates: start: 20120802, end: 20120805
  3. ERYTHROMYCIN [Concomitant]
  4. STERILE WATER FOR INJECTION [Concomitant]
  5. VITAMIN K TAB [Concomitant]
  6. AMPICILLIN [Suspect]
     Indication: PNEUMONIA
     Dosage: 193MG Q8 HOURS IV LAST DOSE 0635
     Route: 042
     Dates: start: 20120802, end: 20120805
  7. AMPICILLIN [Suspect]
     Indication: SEPSIS
     Dosage: 193MG Q8 HOURS IV LAST DOSE 0635
     Route: 042
     Dates: start: 20120802, end: 20120805
  8. HEPATITIS B VACCINE [Concomitant]

REACTIONS (2)
  - DRUG DISPENSING ERROR [None]
  - PRODUCT FORMULATION ISSUE [None]
